FAERS Safety Report 20390651 (Version 5)
Quarter: 2022Q3

REPORT INFORMATION
  Report Type: Report from Study
  Country: US (occurrence: US)
  Receive Date: 20220128
  Receipt Date: 20220723
  Transmission Date: 20221027
  Serious: Yes (Hospitalization)
  Sender: FDA-Public Use
  Company Number: US-NOVARTISTESTPH-NVSC2022US018261

PATIENT
  Sex: Female

DRUGS (2)
  1. ENTRESTO [Suspect]
     Active Substance: SACUBITRIL\VALSARTAN
     Indication: Product used for unknown indication
     Dosage: 1 DOSAGE FORM, BID (24/26MG)
     Route: 048
  2. ENTRESTO [Suspect]
     Active Substance: SACUBITRIL\VALSARTAN
     Dosage: 24.26 MG, BID
     Route: 048

REACTIONS (10)
  - COVID-19 [Recovering/Resolving]
  - Taste disorder [Recovering/Resolving]
  - Pneumonia [Recovering/Resolving]
  - Flank pain [Unknown]
  - Asthma [Unknown]
  - Cough [Unknown]
  - Weight decreased [Unknown]
  - Ear infection [Unknown]
  - Balance disorder [Unknown]
  - Dizziness [Unknown]
